FAERS Safety Report 23321104 (Version 1)
Quarter: 2023Q4

REPORT INFORMATION
  Report Type: Spontaneous
  Country: US (occurrence: None)
  Receive Date: 20231220
  Receipt Date: 20231220
  Transmission Date: 20240110
  Serious: Yes (Disabling)
  Sender: FDA-Public Use
  Company Number: 2023A282589

PATIENT

DRUGS (1)
  1. SYMBICORT [Suspect]
     Active Substance: BUDESONIDE\FORMOTEROL FUMARATE DIHYDRATE
     Dosage: UNKNOWN UNKNOWN
     Route: 055

REACTIONS (7)
  - Immunodeficiency [Unknown]
  - Infection [Unknown]
  - Dyspnoea [Unknown]
  - Cardiac disorder [Unknown]
  - Heart valve incompetence [Unknown]
  - Atrial fibrillation [Unknown]
  - Sleep apnoea syndrome [Unknown]
